FAERS Safety Report 23782381 (Version 1)
Quarter: 2024Q2

REPORT INFORMATION
  Report Type: Spontaneous
  Country: US (occurrence: US)
  Receive Date: 20240425
  Receipt Date: 20240425
  Transmission Date: 20240716
  Serious: Yes (Other)
  Sender: FDA-Public Use
  Company Number: US-BRISTOL-MYERS SQUIBB COMPANY-2024-064563

PATIENT
  Age: 87 Year
  Sex: Female

DRUGS (1)
  1. ELIQUIS [Suspect]
     Active Substance: APIXABAN
     Indication: Product used for unknown indication
     Route: 048

REACTIONS (6)
  - Atrial fibrillation [Unknown]
  - Arthropathy [Unknown]
  - Peripheral swelling [Unknown]
  - Polymyalgia rheumatica [Unknown]
  - Rheumatoid arthritis [Unknown]
  - Oedema peripheral [Unknown]
